FAERS Safety Report 5906732-8 (Version None)
Quarter: 2008Q4

REPORT INFORMATION
  Report Type: 
  Country: None (occurrence: None)
  Receive Date: 20081002
  Receipt Date: 20080922
  Transmission Date: 20090506
  Serious: Yes (Hospitalization, Disabling, Other)
  Sender: FDA-Public Use
  Company Number: US-MERCK-0805USA02806

PATIENT
  Age: 57 Year
  Sex: Female

DRUGS (4)
  1. FOSAMAX [Suspect]
     Indication: OSTEOPENIA
     Route: 048
     Dates: start: 19970801, end: 19980801
  2. SYNTHROID [Concomitant]
     Indication: THYROID DISORDER
     Route: 065
     Dates: start: 19680101
  3. PROZAC [Concomitant]
     Indication: ANXIETY
     Route: 065
     Dates: start: 19980101
  4. PROZAC [Concomitant]
     Indication: DEPRESSION
     Route: 065
     Dates: start: 19980101

REACTIONS (39)
  - ABDOMINAL DISCOMFORT [None]
  - ACUTE SINUSITIS [None]
  - ADVERSE DRUG REACTION [None]
  - ANXIETY [None]
  - BREAST PAIN [None]
  - CARDIAC MURMUR [None]
  - CARPAL TUNNEL SYNDROME [None]
  - DEPRESSION [None]
  - DRUG HYPERSENSITIVITY [None]
  - DRUG INEFFECTIVE [None]
  - EAR DISORDER [None]
  - FIBROMYALGIA [None]
  - FUNGAL INFECTION [None]
  - GASTROOESOPHAGEAL REFLUX DISEASE [None]
  - HEAD INJURY [None]
  - HEADACHE [None]
  - HERPES ZOSTER [None]
  - INFECTION [None]
  - JOINT SPRAIN [None]
  - LARYNGEAL DISORDER [None]
  - LYMPHADENOPATHY [None]
  - MIGRAINE [None]
  - MUSCLE DISORDER [None]
  - NAUSEA [None]
  - NERVOUSNESS [None]
  - ORAL HERPES [None]
  - OROPHARYNGEAL PAIN [None]
  - OSTEOMYELITIS [None]
  - OSTEONECROSIS [None]
  - PAIN [None]
  - ROSACEA [None]
  - SEASONAL ALLERGY [None]
  - SPOUSAL ABUSE [None]
  - STRESS URINARY INCONTINENCE [None]
  - SUICIDAL IDEATION [None]
  - TOOTH DISORDER [None]
  - VENTRICULAR EXTRASYSTOLES [None]
  - VITREOUS DETACHMENT [None]
  - VOMITING [None]
